FAERS Safety Report 24555632 (Version 1)
Quarter: 2024Q4

REPORT INFORMATION
  Report Type: Spontaneous
  Country: US (occurrence: None)
  Receive Date: 20241025
  Receipt Date: 20241025
  Transmission Date: 20250115
  Serious: Yes (Death)
  Sender: Public
  Company Number: None

PATIENT
  Age: 60 Year
  Sex: Male

DRUGS (1)
  1. ADBRY [Suspect]
     Active Substance: TRALOKINUMAB-LDRM
     Indication: Eczema
     Dosage: 300MG EVERY OTHER WEEK SUBCUTANEOUS
     Route: 058
     Dates: start: 20240202, end: 20241021

REACTIONS (1)
  - Death [None]

NARRATIVE: CASE EVENT DATE: 20241021
